APPROVED DRUG PRODUCT: ROCURONIUM BROMIDE
Active Ingredient: ROCURONIUM BROMIDE
Strength: 50MG/5ML (10MG/ML)
Dosage Form/Route: SOLUTION;INTRAVENOUS
Application: N217472 | Product #001
Applicant: FRESENIUS KABI USA LLC
Approved: Jun 9, 2025 | RLD: Yes | RS: Yes | Type: RX